FAERS Safety Report 5824914-0 (Version None)
Quarter: 2008Q3

REPORT INFORMATION
  Report Type: 
  Country: None (occurrence: None)
  Receive Date: 20080728
  Receipt Date: 20080716
  Transmission Date: 20090109
  Serious: Yes (Hospitalization, Other)
  Sender: FDA-Public Use
  Company Number: DE-PFIZER INC-2006091277

PATIENT
  Sex: Female
  Weight: 65 kg

DRUGS (8)
  1. SU-011,248 [Suspect]
     Indication: METASTATIC RENAL CELL CARCINOMA
     Route: 048
     Dates: start: 20060630, end: 20060724
  2. INSUMAN [Concomitant]
     Route: 058
  3. LANTUS [Concomitant]
     Route: 058
     Dates: start: 19980101
  4. DURAGESIC-100 [Concomitant]
     Route: 062
     Dates: start: 19980101
  5. METOCLOPRAMIDE [Concomitant]
     Route: 048
     Dates: start: 20060714, end: 20060722
  6. SODIUM CHLORIDE 0.9% [Concomitant]
     Route: 042
     Dates: start: 20060701, end: 20060731
  7. MOVICOL [Concomitant]
     Route: 048
  8. ENOXAPARIN SODIUM [Concomitant]
     Route: 058

REACTIONS (3)
  - GASTRITIS [None]
  - GASTROOESOPHAGEAL REFLUX DISEASE [None]
  - HAEMOLYTIC ANAEMIA [None]
